FAERS Safety Report 8564360-2 (Version None)
Quarter: 2012Q3

REPORT INFORMATION
  Report Type: 
  Country: None (occurrence: None)
  Receive Date: 20120803
  Receipt Date: 20120725
  Transmission Date: 20120928
  Serious: Yes (Other)
  Sender: FDA-Public Use
  Company Number: MX-ASTELLAS-2012US006495

PATIENT
  Sex: Male

DRUGS (1)
  1. VESICARE [Suspect]
     Indication: HYPERTONIC BLADDER
     Dosage: 10 MG, BID
     Route: 048
     Dates: start: 20110901

REACTIONS (3)
  - BLADDER REPAIR [None]
  - DRUG INEFFECTIVE FOR UNAPPROVED INDICATION [None]
  - OVERDOSE [None]
